FAERS Safety Report 9270218 (Version 1)
Quarter: 2013Q2

REPORT INFORMATION
  Report Type: Spontaneous
  Country: CN (occurrence: CN)
  Receive Date: 20130503
  Receipt Date: 20130503
  Transmission Date: 20140414
  Serious: Yes (Other)
  Sender: FDA-Public Use
  Company Number: CN-BAYER-2013-052788

PATIENT
  Sex: Female

DRUGS (11)
  1. ACETYLSALICYLIC ACID({=100 MG) [Suspect]
     Indication: CEREBRAL INFARCTION
     Dosage: 100 MG, QD
     Route: 048
     Dates: start: 20121104, end: 20121121
  2. METOPROLOL [Suspect]
     Indication: HYPERTENSION
     Dosage: 6 MG, BID
     Route: 048
     Dates: start: 20121104, end: 20121121
  3. ALLOPURINOL [Suspect]
     Indication: HYPERURICAEMIA
     Dosage: 200 MG, TID
     Route: 048
     Dates: start: 20121104, end: 20121121
  4. SPIRONOLACTONE [Suspect]
     Indication: HYPERTENSION
     Dosage: 20 MG, QD
     Route: 048
     Dates: start: 20121104, end: 20121121
  5. AMLODIPINE BESYLATE [Suspect]
     Indication: HYPERTENSION
     Dosage: 5 MG, QD
     Route: 048
     Dates: start: 20121104, end: 20121121
  6. HYDROCHLOROTHIAZIDE [Suspect]
     Indication: HYPERTENSION
     Dosage: 25 MG, QD
     Route: 048
     Dates: start: 20121104, end: 20121121
  7. DIGOXIN [Suspect]
     Indication: CORONARY ARTERY DISEASE
     Dosage: UNK UNK, QD
     Route: 048
     Dates: start: 20121104, end: 20121121
  8. BENAZEPRIL HYDROCHLORIDE [Suspect]
     Indication: HYPERTENSION
     Dosage: 10 MG, QD
     Route: 048
     Dates: start: 20121104, end: 20121121
  9. AMINOPHYLLINE [Suspect]
     Indication: PNEUMONIA
     Dosage: UNK UNK, BID
     Route: 048
     Dates: start: 20121104, end: 20121121
  10. CLOPIDOGREL [Suspect]
     Indication: CEREBRAL INFARCTION
     Dosage: 75 MG, QD
     Route: 048
     Dates: start: 20121104, end: 20121121
  11. ATORVASTATIN CALCIUM [Suspect]
     Indication: CEREBRAL INFARCTION
     Dosage: 20 MG, QD
     Route: 048
     Dates: start: 20121104, end: 20121121

REACTIONS (1)
  - Dermatitis exfoliative [Recovering/Resolving]
